FAERS Safety Report 9315799 (Version 5)
Quarter: 2013Q3

REPORT INFORMATION
  Report Type: Spontaneous
  Country: JP (occurrence: JP)
  Receive Date: 20130529
  Receipt Date: 20130821
  Transmission Date: 20140515
  Serious: Yes (Other)
  Sender: FDA-Public Use
  Company Number: JP-UCBSA-086584

PATIENT
  Age: 76 Year
  Sex: Female

DRUGS (9)
  1. CIMZIA [Suspect]
     Indication: RHEUMATOID ARTHRITIS
     Dosage: 200 MG SYRINGE
     Route: 058
     Dates: start: 20130420, end: 20130502
  2. PROGRAF [Suspect]
     Indication: RHEUMATOID ARTHRITIS
     Dosage: DAILY DOSE: 1 MG
     Route: 048
     Dates: end: 20130502
  3. PREDNISOLONE [Suspect]
     Indication: RHEUMATOID ARTHRITIS
     Route: 048
  4. NORVASC [Concomitant]
     Route: 048
  5. LANSOPRAZOLE [Concomitant]
     Route: 048
  6. LORCAM [Concomitant]
     Route: 048
  7. MUCOSTA [Concomitant]
     Route: 048
  8. ISCOTIN [Concomitant]
     Route: 048
  9. BONOTEO [Concomitant]
     Route: 048

REACTIONS (1)
  - Oesophageal candidiasis [Recovered/Resolved]
